FAERS Safety Report 4510536-0 (Version None)
Quarter: 2004Q4

REPORT INFORMATION
  Report Type: 
  Country: None (occurrence: None)
  Receive Date: 20041122
  Receipt Date: 20041110
  Transmission Date: 20050328
  Serious: Yes (Death)
  Sender: FDA-Public Use
  Company Number: 2004-BP-08260BP

PATIENT
  Age: 55 Year
  Sex: Male

DRUGS (4)
  1. VIRAMUNE [Suspect]
     Indication: HIV INFECTION
     Dosage: 400 MG (200 MG, 2 IN 1 D), PO
     Route: 048
     Dates: start: 20030503, end: 20030905
  2. BACTRIM DS [Concomitant]
  3. ZITHROMAX [Concomitant]
  4. COMBIVIR [Concomitant]

REACTIONS (7)
  - BLOOD CREATININE INCREASED [None]
  - BLOOD GLUCOSE INCREASED [None]
  - HEPATIC ENCEPHALOPATHY [None]
  - HEPATIC FAILURE [None]
  - PRODUCTIVE COUGH [None]
  - RENAL DISORDER [None]
  - THROMBOCYTOPENIA [None]
